FAERS Safety Report 9114704 (Version 1)
Quarter: 2013Q1

REPORT INFORMATION
  Report Type: Spontaneous
  Country: GB (occurrence: None)
  Receive Date: 20130129
  Receipt Date: 20130129
  Transmission Date: 20140127
  Serious: Yes (Hospitalization)
  Sender: FDA-Public Use
  Company Number: GB-010685

PATIENT
  Sex: Female

DRUGS (1)
  1. ZOMACTON (ZOMACTON) 10 MG (NOT SPECIFIED) [Suspect]
     Indication: NOONAN SYNDROME

REACTIONS (2)
  - Lymphangiectasia [None]
  - Lung disorder [None]
